FAERS Safety Report 9255175 (Version 1)
Quarter: 2013Q2

REPORT INFORMATION
  Report Type: Spontaneous
  Country: CH (occurrence: CH)
  Receive Date: 20130425
  Receipt Date: 20130425
  Transmission Date: 20140414
  Serious: Yes (Hospitalization)
  Sender: FDA-Public Use
  Company Number: CH-BAYER-2013-051598

PATIENT
  Age: 65 Year
  Sex: Female

DRUGS (8)
  1. ASPIRIN CARDIO [Suspect]
     Indication: MYOCARDIAL ISCHAEMIA
     Dosage: 100 MG, QD
     Route: 048
  2. MARCOUMAR [Interacting]
     Indication: ATRIAL FIBRILLATION
     Dosage: 3 MG, PRN
     Route: 048
     Dates: start: 201206, end: 20121125
  3. CORDARONE [Interacting]
     Indication: ATRIAL FIBRILLATION
     Dosage: 200 MG, TID
     Route: 048
     Dates: start: 201206, end: 2012
  4. SORTIS [Concomitant]
     Dosage: 40 MG, QD
     Route: 048
  5. TRIATEC [Concomitant]
     Dosage: 2.5 MG, QD
     Route: 048
  6. NEXIUM [Concomitant]
     Dosage: UNK
     Route: 048
  7. PREDNISONE [Concomitant]
     Dosage: 20 MG, QD
     Route: 048
  8. CALCIMAGON-D3 [Concomitant]
     Dosage: UNK
     Route: 048

REACTIONS (2)
  - Subarachnoid haemorrhage [Recovered/Resolved]
  - International normalised ratio increased [Recovered/Resolved]
